FAERS Safety Report 9200584 (Version 1)
Quarter: 2013Q1

REPORT INFORMATION
  Report Type: Report from Study
  Country: US (occurrence: US)
  Receive Date: 20130329
  Receipt Date: 20130329
  Transmission Date: 20140127
  Serious: Yes (Hospitalization, Other)
  Sender: FDA-Public Use
  Company Number: US-JNJCH-2008005073

PATIENT
  Age: 39 Year
  Sex: Male
  Weight: 99.8 kg

DRUGS (7)
  1. MOTRIN [Suspect]
     Indication: RHEUMATOID ARTHRITIS
     Dosage: 100 MG 2X DAILY, THEN 800 MG 2X DAILY
     Route: 048
     Dates: start: 1992
  2. TYLENOL [Concomitant]
     Indication: PAIN
     Dosage: UNSPECIFIED
     Route: 065
  3. LISINOPRIL [Concomitant]
     Indication: HYPERTENSION
     Dosage: UNSPECIFIED
     Route: 065
  4. LORATADINE [Concomitant]
     Dosage: UNSPECIFIED
     Route: 065
  5. LORATADINE [Concomitant]
     Route: 065
  6. GUAIFENESIN [Concomitant]
     Indication: HYPERSENSITIVITY
     Dosage: UNSPECIFIED
     Route: 065
  7. AMOXICILLIN [Concomitant]
     Dosage: UNSPECIFIED
     Route: 065

REACTIONS (7)
  - Depression [Not Recovered/Not Resolved]
  - Glaucoma [Not Recovered/Not Resolved]
  - Pain [Not Recovered/Not Resolved]
  - Blood cholesterol increased [Unknown]
  - Gastrooesophageal reflux disease [Not Recovered/Not Resolved]
  - Drug ineffective [Unknown]
  - Incorrect drug administration duration [Unknown]
